FAERS Safety Report 7506421-2 (Version None)
Quarter: 2011Q2

REPORT INFORMATION
  Report Type: 
  Country: None (occurrence: None)
  Receive Date: 20110519
  Receipt Date: 20110507
  Transmission Date: 20111010
  Serious: Yes (Death, Other)
  Sender: FDA-Public Use
  Company Number: 2011AP000942

PATIENT
  Age: 33 Year
  Sex: Female

DRUGS (1)
  1. TOPIRAMATE [Suspect]
     Indication: POST-TRAUMATIC EPILEPSY

REACTIONS (8)
  - CONTINUOUS HAEMODIAFILTRATION [None]
  - METABOLIC ACIDOSIS [None]
  - RHABDOMYOLYSIS [None]
  - SHOCK [None]
  - LEUKOCYTOSIS [None]
  - OLIGURIA [None]
  - GRAND MAL CONVULSION [None]
  - MULTI-ORGAN FAILURE [None]
